FAERS Safety Report 10576543 (Version 1)
Quarter: 2014Q4

REPORT INFORMATION
  Report Type: Spontaneous
  Country: GR (occurrence: GR)
  Receive Date: 20141111
  Receipt Date: 20141111
  Transmission Date: 20150529
  Serious: Yes (Other)
  Sender: FDA-Public Use
  Company Number: GR-ACTAVIS-2014-23761

PATIENT
  Age: 30 Year
  Sex: Female

DRUGS (1)
  1. CLARITHROMYCIN (UNKNOWN) [Suspect]
     Active Substance: CLARITHROMYCIN
     Indication: BRONCHOPNEUMONIA
     Dosage: UNK
     Route: 048

REACTIONS (3)
  - Mydriasis [None]
  - Iris atrophy [Not Recovered/Not Resolved]
  - Headache [None]
